FAERS Safety Report 21929496 (Version 2)
Quarter: 2023Q1

REPORT INFORMATION
  Report Type: Spontaneous
  Country: ZA (occurrence: ZA)
  Receive Date: 20230131
  Receipt Date: 20230206
  Transmission Date: 20230418
  Serious: Yes (Hospitalization)
  Sender: FDA-Public Use
  Company Number: ZA-002147023-NVSC2023ZA014951

PATIENT
  Age: 35 Year
  Sex: Female

DRUGS (2)
  1. XOLAIR [Suspect]
     Active Substance: OMALIZUMAB
     Indication: Asthma
     Dosage: 450 MG, QMO
     Route: 058
     Dates: start: 20170817
  2. XOLAIR [Suspect]
     Active Substance: OMALIZUMAB
     Dosage: UNK
     Route: 058
     Dates: start: 20230102

REACTIONS (4)
  - Vertigo [Recovering/Resolving]
  - Ear infection [Unknown]
  - Sinusitis [Unknown]
  - Tinnitus [Unknown]

NARRATIVE: CASE EVENT DATE: 20230117
